FAERS Safety Report 16410620 (Version 1)
Quarter: 2019Q2

REPORT INFORMATION
  Report Type: Spontaneous
  Country: CH (occurrence: CH)
  Receive Date: 20190610
  Receipt Date: 20190610
  Transmission Date: 20190711
  Serious: Yes (Hospitalization, Other)
  Sender: FDA-Public Use
  Company Number: CH-PFIZER INC-2019242162

PATIENT
  Age: 86 Year
  Sex: Female
  Weight: 73.5 kg

DRUGS (9)
  1. TORASEMID SANDOZ ECO [Concomitant]
     Active Substance: TORSEMIDE
     Dosage: 0.5 DF, 1X/DAY (10MG: 1/2-0-0-0)
     Route: 048
  2. COVERSUM N [Concomitant]
     Active Substance: PERINDOPRIL
     Dosage: 0.5 DF, 1X/DAY  ( 5MG: 1/2-0-0-0)
     Route: 048
  3. PANTOPRAZOL NYCOMED [Concomitant]
     Active Substance: PANTOPRAZOLE SODIUM
     Dosage: 1 DF, 1X/DAY (40MG: 1-0-0-0)
     Route: 048
  4. DILZEM [Concomitant]
     Active Substance: DILTIAZEM
     Dosage: 1 DF, 1X/DAY (90MG: 1-0-0-0)
     Route: 048
  5. DILZEM [Concomitant]
     Active Substance: DILTIAZEM
     Dosage: 120MG, 1X/DAY (120MG: 0-0-1-0)
     Route: 048
  6. DALACIN C [Suspect]
     Active Substance: CLINDAMYCIN PHOSPHATE
     Dosage: 1 DF, 4X/DAY (300MG: 1-1-1-1)
     Route: 048
     Dates: start: 20190509, end: 20190512
  7. METFORMIN [Concomitant]
     Active Substance: METFORMIN HYDROCHLORIDE
     Dosage: 500 MG, 2-1-2-0
     Route: 048
  8. SINTROM [Concomitant]
     Active Substance: ACENOCOUMAROL
     Dosage: ACCORDING MEDICAL SCHEME
     Route: 048
  9. STARLIX [Concomitant]
     Active Substance: NATEGLINIDE
     Dosage: 1 DF, 3X/DAY (60MG: 1-1-1-0)
     Route: 048

REACTIONS (2)
  - Acute kidney injury [Recovered/Resolved]
  - Anaphylactic reaction [Recovered/Resolved]

NARRATIVE: CASE EVENT DATE: 20190512
